FAERS Safety Report 23584311 (Version 2)
Quarter: 2024Q1

REPORT INFORMATION
  Report Type: Report from Study
  Country: US (occurrence: US)
  Receive Date: 20240301
  Receipt Date: 20240329
  Transmission Date: 20240410
  Serious: Yes (Other)
  Sender: FDA-Public Use
  Company Number: US-ABBVIE-5657452

PATIENT
  Sex: Female

DRUGS (1)
  1. HUMIRA [Suspect]
     Active Substance: ADALIMUMAB
     Indication: Rheumatoid arthritis
     Route: 058
     Dates: start: 20221128

REACTIONS (4)
  - Pain in extremity [Unknown]
  - Pyrexia [Recovering/Resolving]
  - Exostosis [Recovering/Resolving]
  - Arthralgia [Recovering/Resolving]
